FAERS Safety Report 8904596 (Version 4)
Quarter: 2014Q2

REPORT INFORMATION
  Report Type: Spontaneous
  Country: US (occurrence: US)
  Receive Date: 20121113
  Receipt Date: 20140530
  Transmission Date: 20141212
  Serious: Yes (Hospitalization, Disabling, Other)
  Sender: FDA-Public Use
  Company Number: US-009507513-1211USA002773

PATIENT
  Sex: Female

DRUGS (7)
  1. FOSAMAX [Suspect]
     Indication: OSTEOPOROSIS
     Dosage: 70 MG, UNK
     Route: 048
     Dates: start: 20030923
  2. FOSAMAX [Suspect]
     Dosage: 70 UNK, UNK
     Route: 048
     Dates: start: 20080522, end: 20090610
  3. FOSAMAX PLUS D [Suspect]
     Indication: OSTEOPOROSIS
     Route: 048
  4. ALENDRONATE SODIUM [Suspect]
     Dosage: 70 MG, UNK
  5. HORMONES (UNSPECIFIED) [Concomitant]
  6. TENORETIC [Concomitant]
  7. WELLBUTRIN [Concomitant]

REACTIONS (15)
  - Femur fracture [Unknown]
  - Intervertebral disc operation [Unknown]
  - Open reduction of fracture [Unknown]
  - Femur fracture [Unknown]
  - Femur fracture [Unknown]
  - Stress fracture [Unknown]
  - Hypotension [Unknown]
  - Hyponatraemia [Unknown]
  - Anaemia [Unknown]
  - Low turnover osteopathy [Unknown]
  - Osteoporosis [Unknown]
  - Osteopenia [Unknown]
  - Spinal osteoarthritis [Unknown]
  - Cataract [Unknown]
  - Hernia repair [Unknown]
